FAERS Safety Report 9770436 (Version 3)
Quarter: 2014Q1

REPORT INFORMATION
  Report Type: Report from Study
  Country: US (occurrence: US)
  Receive Date: 20131218
  Receipt Date: 20140204
  Transmission Date: 20141002
  Serious: Yes (Death, Hospitalization, Other)
  Sender: FDA-Public Use
  Company Number: US-PFIZER INC-2013351397

PATIENT
  Age: 65 Year
  Sex: Female
  Weight: 57.6 kg

DRUGS (1)
  1. SUNITINIB MALATE [Suspect]
     Indication: OVARIAN EPITHELIAL CANCER
     Dosage: 50 MG, 1X/DAY FOR 4 WEEKS, FOLLOWED BY 2 WEEKS OFF
     Route: 048
     Dates: start: 20130920, end: 20131112

REACTIONS (7)
  - Hypotension [Recovered/Resolved]
  - Fatigue [Unknown]
  - Embolism [Unknown]
  - Platelet count decreased [Not Recovered/Not Resolved]
  - Anaemia [Recovered/Resolved]
  - Disease progression [Fatal]
  - Ovarian epithelial cancer [Fatal]
